FAERS Safety Report 15361891 (Version 10)
Quarter: 2019Q2

REPORT INFORMATION
  Report Type: Report from Study
  Country: DE (occurrence: DE)
  Receive Date: 20180907
  Receipt Date: 20190601
  Transmission Date: 20190711
  Serious: Yes (Hospitalization, Disabling, Other)
  Sender: FDA-Public Use
  Company Number: DE-BAUSCH-BL-2018-024798

PATIENT
  Age: 64 Year
  Sex: Female

DRUGS (1)
  1. KYNTHEUM [Suspect]
     Active Substance: BRODALUMAB
     Indication: PSORIASIS
     Route: 058
     Dates: start: 20180314, end: 20180816

REACTIONS (7)
  - Coordination abnormal [Recovered/Resolved]
  - Sensory level abnormal [Recovered/Resolved]
  - Spinal cord disorder [Recovered/Resolved]
  - Asthenia [Recovered/Resolved]
  - Intervertebral disc protrusion [Not Recovered/Not Resolved]
  - Cervical spinal stenosis [Not Recovered/Not Resolved]
  - Folate deficiency [Not Recovered/Not Resolved]

NARRATIVE: CASE EVENT DATE: 20180828
